FAERS Safety Report 9416395 (Version 1)
Quarter: 2013Q3

REPORT INFORMATION
  Report Type: Spontaneous
  Country: None (occurrence: None)
  Receive Date: 20130718
  Receipt Date: 20130718
  Transmission Date: 20140515
  Serious: Yes (Hospitalization, Other)
  Sender: FDA-Public Use
  Company Number: HRA-CDB20130133

PATIENT
  Age: 34 Year
  Sex: Female

DRUGS (2)
  1. ELLAONE [Suspect]
     Indication: POST COITAL CONTRACEPTION
  2. PROGESTERONE [Concomitant]
     Dosage: 30MG (30MG, 1 IN 1 D), ORAL
     Route: 048
     Dates: start: 20130415, end: 20130415

REACTIONS (7)
  - Abdominal pain [None]
  - Vaginal haemorrhage [None]
  - Ectopic pregnancy [None]
  - Ruptured ectopic pregnancy [None]
  - Tubal rupture [None]
  - Abortion induced [None]
  - Salpingectomy [None]
